FAERS Safety Report 18104217 (Version 1)
Quarter: 2020Q3

REPORT INFORMATION
  Report Type: Spontaneous
  Country: JP (occurrence: JP)
  Receive Date: 20200803
  Receipt Date: 20200803
  Transmission Date: 20201103
  Serious: Yes (Other)
  Sender: FDA-Public Use
  Company Number: JP-JNJFOC-20200731795

PATIENT
  Age: 31 Year
  Sex: Female

DRUGS (2)
  1. REMICADE [Suspect]
     Active Substance: INFLIXIMAB
     Indication: PUSTULAR PSORIASIS
     Route: 042
  2. PREDNISOLONE. [Concomitant]
     Active Substance: PREDNISOLONE
     Indication: PUSTULAR PSORIASIS
     Route: 065

REACTIONS (2)
  - Premature labour [Recovered/Resolved]
  - Exposure during pregnancy [Recovered/Resolved]
